FAERS Safety Report 4603260-7 (Version None)
Quarter: 2005Q2

REPORT INFORMATION
  Report Type: 
  Country: None (occurrence: None)
  Receive Date: 20050223
  Receipt Date: 20040526
  Transmission Date: 20051028
  Serious: Yes (Other)
  Sender: FDA-Public Use
  Company Number: PHEH2004US05896

PATIENT
  Age: 81 Year
  Sex: Female

DRUGS (1)
  1. DIOVAN [Suspect]
     Indication: HYPERTENSION
     Dosage: DOUBLED DOSAGE; ONE A DAY
     Dates: start: 20040523

REACTIONS (1)
  - BLOOD PRESSURE INCREASED [None]
